FAERS Safety Report 14519516 (Version 1)
Quarter: 2018Q1

REPORT INFORMATION
  Report Type: Spontaneous
  Country: US (occurrence: US)
  Receive Date: 20180209
  Receipt Date: 20180209
  Transmission Date: 20180509
  Serious: Yes (Hospitalization)
  Sender: FDA-Public Use
  Company Number: None

PATIENT
  Age: 13 Year
  Sex: Male
  Weight: 51.75 kg

DRUGS (1)
  1. OSELTAMVIR 75MG CAP ALVO [Suspect]
     Active Substance: OSELTAMIVIR
     Indication: INFLUENZA
     Dosage: ?          QUANTITY:1 CAPSULE(S);?
     Route: 048
     Dates: start: 20180208, end: 20180208

REACTIONS (2)
  - Anaemia [None]
  - Seizure [None]

NARRATIVE: CASE EVENT DATE: 20180208
